FAERS Safety Report 25891463 (Version 2)
Quarter: 2025Q4

REPORT INFORMATION
  Report Type: Spontaneous
  Country: US (occurrence: US)
  Receive Date: 20251007
  Receipt Date: 20251014
  Transmission Date: 20260118
  Serious: No
  Sender: FRESENIUS KABI
  Company Number: US-FreseniusKabi-FK202513527

PATIENT

DRUGS (2)
  1. XYLOCAINE MPF WITH EPINEPHRINE [Suspect]
     Active Substance: EPINEPHRINE BITARTRATE\LIDOCAINE HYDROCHLORIDE
     Indication: Anaesthesia
     Dosage: 1:200,000 WAS ADMINISTERED AS A SPINAL INJECTION
  2. XYLOCAINE MPF WITH EPINEPHRINE [Suspect]
     Active Substance: EPINEPHRINE BITARTRATE\LIDOCAINE HYDROCHLORIDE
     Dosage: 1:200,000 WAS ADMINISTERED AS A SPINAL INJECTION

REACTIONS (2)
  - Off label use [Unknown]
  - Drug ineffective [Unknown]
